FAERS Safety Report 11156105 (Version 1)
Quarter: 2015Q2

REPORT INFORMATION
  Report Type: Spontaneous
  Country: US (occurrence: None)
  Receive Date: 20150529
  Receipt Date: 20150529
  Transmission Date: 20150821
  Serious: No
  Sender: FDA-Public Use
  Company Number: None

PATIENT
  Sex: Male

DRUGS (4)
  1. HARVONI [Suspect]
     Active Substance: LEDIPASVIR\SOFOSBUVIR
     Indication: HEPATITIS
     Route: 048
     Dates: start: 20150403
  2. ANACIN [Concomitant]
     Active Substance: ASPIRIN\CAFFEINE
  3. WELLBUTRIN [Concomitant]
     Active Substance: BUPROPION HYDROCHLORIDE
  4. CAFFEINE. [Concomitant]
     Active Substance: CAFFEINE

REACTIONS (2)
  - Fatigue [None]
  - Headache [None]
